FAERS Safety Report 16364278 (Version 2)
Quarter: 2019Q3

REPORT INFORMATION
  Report Type: Spontaneous
  Country: US (occurrence: US)
  Receive Date: 20190528
  Receipt Date: 20190725
  Transmission Date: 20191004
  Serious: Yes (Hospitalization)
  Sender: FDA-Public Use
  Company Number: US-JAZZ-2019-US-007178

PATIENT
  Age: 30 Year
  Sex: Female

DRUGS (2)
  1. XYREM [Suspect]
     Active Substance: SODIUM OXYBATE
     Dosage: RESTARTED ON UNKNOWN DOSE
     Route: 048
  2. XYREM [Suspect]
     Active Substance: SODIUM OXYBATE
     Indication: NARCOLEPSY
     Dosage: UNKNOWN DOSE
     Route: 048

REACTIONS (8)
  - Hallucination [Recovered/Resolved]
  - Anxiety [Unknown]
  - Tachycardia [Recovered/Resolved]
  - Electrolyte imbalance [Recovered/Resolved]
  - Tremor [Recovered/Resolved]
  - Delusion [Recovered/Resolved]
  - Agitation [Unknown]
  - Mental status changes [Unknown]

NARRATIVE: CASE EVENT DATE: 20190409
